FAERS Safety Report 5562631-5 (Version None)
Quarter: 2007Q4

REPORT INFORMATION
  Report Type: 
  Country: None (occurrence: None)
  Receive Date: 20071211
  Receipt Date: 20071211
  Transmission Date: 20080405
  Serious: Yes (Other)
  Sender: FDA-Public Use
  Company Number: None

PATIENT
  Age: 38 Year
  Sex: Female
  Weight: 61.2356 kg

DRUGS (1)
  1. CHANTIX [Suspect]
     Indication: SMOKING CESSATION THERAPY
     Dosage: STARTER PACK ONCE DAILY PO
     Route: 048
     Dates: start: 20071103, end: 20071108

REACTIONS (11)
  - DECREASED INTEREST [None]
  - DISSOCIATION [None]
  - FEELING ABNORMAL [None]
  - IMPAIRED DRIVING ABILITY [None]
  - IMPAIRED WORK ABILITY [None]
  - MAJOR DEPRESSION [None]
  - MENTAL IMPAIRMENT [None]
  - ORAL INTAKE REDUCED [None]
  - SOMNOLENCE [None]
  - THINKING ABNORMAL [None]
  - WEIGHT DECREASED [None]
